APPROVED DRUG PRODUCT: BRINZOLAMIDE
Active Ingredient: BRINZOLAMIDE
Strength: 1%
Dosage Form/Route: SUSPENSION/DROPS;OPHTHALMIC
Application: A211914 | Product #001
Applicant: PADAGIS US LLC
Approved: Jul 28, 2023 | RLD: No | RS: No | Type: DISCN